FAERS Safety Report 16744495 (Version 1)
Quarter: 2019Q3

REPORT INFORMATION
  Report Type: Spontaneous
  Country: US (occurrence: US)
  Receive Date: 20190709
  Receipt Date: 20190709
  Transmission Date: 20191005
  Serious: No
  Sender: FDA-Public Use
  Company Number: None

PATIENT
  Age: 32 Year
  Sex: Female

DRUGS (1)
  1. STELARA [Suspect]
     Active Substance: USTEKINUMAB
     Dates: start: 2016

REACTIONS (4)
  - Exposure during pregnancy [None]
  - Anal abscess [None]
  - Insurance issue [None]
  - Therapy cessation [None]

NARRATIVE: CASE EVENT DATE: 20190709
